FAERS Safety Report 7681183-7 (Version None)
Quarter: 2011Q3

REPORT INFORMATION
  Report Type: 
  Country: None (occurrence: None)
  Receive Date: 20110812
  Receipt Date: 20110802
  Transmission Date: 20111222
  Serious: Yes (Other)
  Sender: FDA-Public Use
  Company Number: FR-GENENTECH-322662

PATIENT
  Sex: Male

DRUGS (7)
  1. HYDROCORTISONE [Concomitant]
     Indication: HYPOPITUITARISM
     Dosage: 30 MG, QD
     Dates: start: 20030101
  2. DESMOPRESSIN ACETATE [Concomitant]
     Indication: PRODUCT USED FOR UNKNOWN INDICATION
     Dosage: 120 A?G, BID
     Route: 048
     Dates: start: 20030101
  3. TRILEPTAL [Concomitant]
     Indication: PRODUCT USED FOR UNKNOWN INDICATION
     Dosage: 300 MG, BID
     Route: 048
     Dates: start: 20030101
  4. NUTROPIN AQ [Suspect]
     Indication: GROWTH HORMONE DEFICIENCY
     Dosage: 0.2 MG, QD
     Route: 058
     Dates: start: 20110501, end: 20110707
  5. ANDROTARDYL [Concomitant]
     Indication: PRODUCT USED FOR UNKNOWN INDICATION
     Dosage: 250 MG, Q3W
     Route: 030
     Dates: start: 20030101
  6. LEVOTHYROXINE SODIUM [Concomitant]
     Indication: PRODUCT USED FOR UNKNOWN INDICATION
     Dosage: 150 A?G, QD
     Route: 048
  7. MOPRAL (FRANCE) [Concomitant]
     Indication: PRODUCT USED FOR UNKNOWN INDICATION
     Dosage: 10 MG, QD
     Route: 048
     Dates: start: 20030101

REACTIONS (3)
  - DERMATITIS ALLERGIC [None]
  - PRURITUS [None]
  - RASH ERYTHEMATOUS [None]
